FAERS Safety Report 4332621-9 (Version None)
Quarter: 2004Q1

REPORT INFORMATION
  Report Type: 
  Country: None (occurrence: None)
  Receive Date: 20040330
  Receipt Date: 20040315
  Transmission Date: 20041129
  Serious: Yes (Death)
  Sender: FDA-Public Use
  Company Number: S04-FRA-01019-01

PATIENT
  Age: 79 Year
  Sex: Female

DRUGS (5)
  1. SEROPRAM (CITALOPRAM HYDROBROMIDE) [Suspect]
     Indication: DEPRESSION
     Dosage: 20 MG QD PO
     Route: 048
     Dates: end: 20040101
  2. PLAVIX [Suspect]
     Indication: ATRIAL FIBRILLATION
     Dates: end: 20040101
  3. PLAVIX [Suspect]
     Indication: ATRIAL FIBRILLATION
     Dates: start: 20040101, end: 20040101
  4. EPIVIR [Concomitant]
  5. KALETRA [Concomitant]

REACTIONS (11)
  - ABDOMINAL PAIN [None]
  - ECCHYMOSIS [None]
  - HAEMATOCRIT DECREASED [None]
  - HAEMOGLOBIN DECREASED [None]
  - INTESTINAL INFARCTION [None]
  - ISCHAEMIA [None]
  - LYMPHOCYTE COUNT DECREASED [None]
  - NEUTROPHIL PERCENTAGE INCREASED [None]
  - PLATELET COUNT INCREASED [None]
  - RED BLOOD CELL COUNT DECREASED [None]
  - WHITE BLOOD CELL COUNT INCREASED [None]
